FAERS Safety Report 21003013 (Version 1)
Quarter: 2022Q2

REPORT INFORMATION
  Report Type: Spontaneous
  Country: US (occurrence: None)
  Receive Date: 20220623
  Receipt Date: 20220623
  Transmission Date: 20220720
  Serious: No
  Sender: FDA-Public Use
  Company Number: None

PATIENT
  Age: 19 Year
  Sex: Male

DRUGS (1)
  1. STELARA [Suspect]
     Active Substance: USTEKINUMAB
     Indication: Colitis
     Dosage: 90MG EVERY 4 WEEKS SC
     Route: 058
     Dates: start: 202107

REACTIONS (6)
  - Device defective [None]
  - Syringe issue [None]
  - Product dose omission issue [None]
  - Condition aggravated [None]
  - Clostridium difficile infection [None]
  - Escherichia infection [None]

NARRATIVE: CASE EVENT DATE: 20220622
